FAERS Safety Report 25255879 (Version 1)
Quarter: 2025Q2

REPORT INFORMATION
  Report Type: Spontaneous
  Country: QA (occurrence: QA)
  Receive Date: 20250430
  Receipt Date: 20250430
  Transmission Date: 20250717
  Serious: Yes (Hospitalization, Other)
  Sender: PFIZER
  Company Number: QA-JNJFOC-20210219390

PATIENT
  Age: 49 Year
  Sex: Male

DRUGS (7)
  1. PROPOFOL [Suspect]
     Active Substance: PROPOFOL
     Indication: Maintenance of anaesthesia
     Route: 041
  2. REMIFENTANIL [Suspect]
     Active Substance: REMIFENTANIL
     Indication: Maintenance of anaesthesia
     Route: 041
  3. ETOMIDATE [Suspect]
     Active Substance: ETOMIDATE
     Indication: Induction of anaesthesia
  4. ROCURONIUM BROMIDE [Suspect]
     Active Substance: ROCURONIUM BROMIDE
     Indication: Anaesthesia
  5. FENTANYL [Suspect]
     Active Substance: FENTANYL
     Indication: Induction of anaesthesia
  6. KETAMINE [Suspect]
     Active Substance: KETAMINE
     Indication: Induction of anaesthesia
  7. CEFAZOLIN [Concomitant]
     Active Substance: CEFAZOLIN

REACTIONS (1)
  - Diabetes insipidus [Recovered/Resolved]
